FAERS Safety Report 7744115-9 (Version None)
Quarter: 2011Q3

REPORT INFORMATION
  Report Type: 
  Country: None (occurrence: None)
  Receive Date: 20110912
  Receipt Date: 20110830
  Transmission Date: 20111222
  Serious: Yes (Hospitalization)
  Sender: FDA-Public Use
  Company Number: US-JNJFOC-2004019054

PATIENT
  Age: 18 Year
  Sex: Female

DRUGS (5)
  1. BENADRYL [Suspect]
     Route: 048
  2. DIPHENHYDRAMINE HYDROCHLORIDE [Suspect]
     Indication: HYPERSENSITIVITY
     Dosage: DAILY DOSE TEXT: UNSPECIFIED
     Route: 042
  3. BENADRYL [Suspect]
     Indication: SUNBURN
     Dosage: DAILY DOSE TEXT: UNSPECIFIED
     Route: 048
  4. EPINEPHRINE [Suspect]
     Indication: HYPERSENSITIVITY
     Dosage: DAILY DOSE TEXT: UNSPECIFIED
     Route: 030
  5. BENADRYL [Suspect]
     Dosage: DAILY DOSE TEXT: UNSPECIFIED
     Route: 061

REACTIONS (5)
  - HYPERSENSITIVITY [None]
  - PHARYNGEAL OEDEMA [None]
  - OVERDOSE [None]
  - CONDITION AGGRAVATED [None]
  - URTICARIA [None]
